FAERS Safety Report 20651691 (Version 3)
Quarter: 2022Q2

REPORT INFORMATION
  Report Type: Spontaneous
  Country: JP (occurrence: JP)
  Receive Date: 20220330
  Receipt Date: 20220415
  Transmission Date: 20220721
  Serious: Yes (Death, Other)
  Sender: FDA-Public Use
  Company Number: JP-BAYER-2022A045297

PATIENT
  Age: 71 Year
  Sex: Male
  Weight: 82 kg

DRUGS (5)
  1. XARELTO [Suspect]
     Active Substance: RIVAROXABAN
     Indication: Product used for unknown indication
     Dosage: DAILY DOSE 15 MG
     Route: 048
     Dates: start: 20180725, end: 20220303
  2. ENALAPRIL [Concomitant]
     Active Substance: ENALAPRIL
     Indication: Cardiac failure
     Dosage: DAILY DOSE 2.5 MG
     Route: 048
     Dates: start: 20180725, end: 20220303
  3. FEBUXOSTAT [Concomitant]
     Active Substance: FEBUXOSTAT
     Indication: Hyperuricaemia
     Dosage: DAILY DOSE 20 MG
     Route: 048
     Dates: start: 20180731, end: 20220303
  4. BISOPROLOL [Concomitant]
     Active Substance: BISOPROLOL
     Indication: Cardiac failure
     Dosage: DAILY DOSE 2.5 MG
     Dates: start: 20180914, end: 20220303
  5. LANSOPRAZOLE [Concomitant]
     Active Substance: LANSOPRAZOLE
     Indication: Prophylaxis against gastrointestinal ulcer
     Dosage: DAILY DOSE 15 MG
     Route: 048
     Dates: start: 20180725, end: 20220303

REACTIONS (6)
  - Putamen haemorrhage [Fatal]
  - Cerebral ventricular rupture [Unknown]
  - Altered state of consciousness [Unknown]
  - Loss of consciousness [Unknown]
  - Glossoptosis [Unknown]
  - Blood pressure increased [Unknown]

NARRATIVE: CASE EVENT DATE: 20220301
